FAERS Safety Report 5379753-4 (Version None)
Quarter: 2007Q3

REPORT INFORMATION
  Report Type: 
  Country: None (occurrence: None)
  Receive Date: 20070706
  Receipt Date: 20070629
  Transmission Date: 20080115
  Serious: Yes (Hospitalization)
  Sender: FDA-Public Use
  Company Number: PHEH2007US04308

PATIENT
  Age: 81 Year
  Sex: Female

DRUGS (11)
  1. ZELNORM [Suspect]
     Indication: CONSTIPATION
     Dosage: 6 MG, BID
     Route: 048
     Dates: end: 20070328
  2. ZELNORM [Suspect]
     Dosage: 6 MG, QD
     Dates: start: 20060101
  3. RYTHMOL [Concomitant]
     Indication: ATRIAL FIBRILLATION
     Dosage: 225 MG, TID
     Route: 048
  4. BENICAR [Concomitant]
     Indication: HYPERTENSION
     Dosage: 10 MG, BID
     Route: 048
  5. PREMPRO [Concomitant]
     Indication: HORMONE REPLACEMENT THERAPY
     Dosage: 0.5/1.5, QD
     Route: 048
  6. COUMADIN [Concomitant]
     Indication: ATRIAL FIBRILLATION
     Dosage: 5 ON MWF ALTERNATING W/ 2.5 ON TTHSUN, QD
     Route: 048
  7. SKELAXIN [Concomitant]
     Dosage: 800 MG, QD
  8. MAXZIDE [Concomitant]
  9. PRILOSEC [Concomitant]
     Indication: GASTROOESOPHAGEAL REFLUX DISEASE
     Dosage: 20 MG, QD
     Route: 048
  10. CLONIDINE [Concomitant]
     Indication: HYPERTENSION
     Dosage: 0.1 MG, QHS
     Route: 048
  11. LESCOL XL [Concomitant]
     Indication: HYPERCHOLESTEROLAEMIA
     Dosage: 80 MG, QD
     Route: 048

REACTIONS (4)
  - ABDOMINAL PAIN [None]
  - BLOOD PRESSURE INADEQUATELY CONTROLLED [None]
  - HYPOAESTHESIA [None]
  - PARAESTHESIA [None]
